FAERS Safety Report 21299541 (Version 1)
Quarter: 2022Q3

REPORT INFORMATION
  Report Type: Spontaneous
  Country: US (occurrence: None)
  Receive Date: 20220906
  Receipt Date: 20220906
  Transmission Date: 20221027
  Serious: Yes (Hospitalization, Disabling)
  Sender: FDA-Public Use
  Company Number: None

PATIENT
  Age: 65 Year
  Sex: Female

DRUGS (9)
  1. BARICITINIB [Suspect]
     Active Substance: BARICITINIB
     Indication: COVID-19
     Dates: start: 20211221, end: 20211227
  2. DULOXETINE [Concomitant]
  3. PANTOPRAZOLE EC [Concomitant]
  4. ELIQUIS [Concomitant]
     Active Substance: APIXABAN
  5. MIRTAZAPINE [Concomitant]
     Active Substance: MIRTAZAPINE
  6. CARVEDILOL [Concomitant]
     Active Substance: CARVEDILOL
  7. ONDANSETRON HYDROCHLORIDE [Concomitant]
     Active Substance: ONDANSETRON HYDROCHLORIDE
  8. BUSPIROE [Concomitant]
  9. CULTURELLE WOMAN^S HEALTHY BALANCE [Concomitant]

REACTIONS (4)
  - Disability [None]
  - Gait inability [None]
  - Feeding disorder [None]
  - Loss of personal independence in daily activities [None]

NARRATIVE: CASE EVENT DATE: 20211221
